FAERS Safety Report 4768249-6 (Version None)
Quarter: 2005Q3

REPORT INFORMATION
  Report Type: 
  Country: None (occurrence: None)
  Receive Date: 20050818
  Receipt Date: 20050805
  Transmission Date: 20060218
  Serious: Yes (Hospitalization)
  Sender: FDA-Public Use
  Company Number: THYM-10642

PATIENT
  Age: 54 Year
  Sex: Male
  Weight: 106.5 kg

DRUGS (22)
  1. THYMOGLOBULIN [Suspect]
     Indication: HEART TRANSPLANT REJECTION
     Dosage: 80 MG QD IV
     Route: 042
     Dates: start: 20050705, end: 20050707
  2. THYMOGLOBULIN [Suspect]
     Indication: HEART TRANSPLANT REJECTION
     Dosage: 100 MG QD IV
     Route: 042
     Dates: start: 20050708, end: 20050709
  3. THYMOGLOBULIN [Suspect]
     Indication: HEART TRANSPLANT REJECTION
     Dosage: 75 MG QD IV
     Route: 042
     Dates: start: 20050710, end: 20050710
  4. SOLU-MEDROL [Concomitant]
  5. NEORAL [Concomitant]
  6. PREDNISONE [Concomitant]
  7. BACTRIM [Concomitant]
  8. VALCYTE [Concomitant]
  9. MYCELEX [Concomitant]
  10. OSCAL [Concomitant]
  11. ECOTRIN [Concomitant]
  12. CLONIDINE [Concomitant]
  13. ARANESP [Concomitant]
  14. CARDURA [Concomitant]
  15. IRON [Concomitant]
  16. FOLATE [Concomitant]
  17. LASIX [Concomitant]
  18. LANTUS [Concomitant]
  19. IMDUR [Concomitant]
  20. MAGNESIUM OXIDE [Concomitant]
  21. PROTONIX [Concomitant]
  22. PRAVACHOL [Concomitant]

REACTIONS (2)
  - RENAL FAILURE [None]
  - SERUM SICKNESS [None]
